FAERS Safety Report 9513007 (Version 1)
Quarter: 2013Q3

REPORT INFORMATION
  Report Type: Spontaneous
  Country: DE (occurrence: DE)
  Receive Date: 20130910
  Receipt Date: 20130910
  Transmission Date: 20140515
  Serious: Yes (Hospitalization)
  Sender: FDA-Public Use
  Company Number: DE-PFIZER INC-2013254635

PATIENT
  Age: 65 Year
  Sex: Male

DRUGS (3)
  1. METHYLPREDNISOLONE [Suspect]
     Indication: SPLENIC MARGINAL ZONE LYMPHOMA
     Dosage: UNK
  2. RITUXIMAB [Suspect]
     Indication: SPLENIC MARGINAL ZONE LYMPHOMA
     Dosage: SIX CYCLES
  3. BENDAMUSTINE [Concomitant]
     Indication: SPLENIC MARGINAL ZONE LYMPHOMA
     Dosage: FIVE CYCLES

REACTIONS (2)
  - Spleen disorder [Recovered/Resolved]
  - Histology abnormal [Recovered/Resolved]
